FAERS Safety Report 11292354 (Version 1)
Quarter: 2015Q3

REPORT INFORMATION
  Report Type: Spontaneous
  Country: US (occurrence: None)
  Receive Date: 20150721
  Receipt Date: 20150721
  Transmission Date: 20151125
  Serious: Yes (Disabling, Other)
  Sender: FDA-Public Use
  Company Number: None

PATIENT
  Age: 34 Year
  Sex: Female
  Weight: 63.5 kg

DRUGS (5)
  1. MULTIVITAMIN [Concomitant]
     Active Substance: VITAMINS
  2. YAZ OCP [Concomitant]
  3. AMPHETAMINE SALTS 15MG AUROBINDO [Suspect]
     Active Substance: AMPHETAMINE ASPARTATE\AMPHETAMINE SULFATE\DEXTROAMPHETAMINE SACCHARATE\DEXTROAMPHETAMINE SULFATE
     Indication: ATTENTION DEFICIT/HYPERACTIVITY DISORDER
     Route: 048
     Dates: start: 201505
  4. KEPPRA [Concomitant]
     Active Substance: LEVETIRACETAM
  5. ADDERALL [Concomitant]
     Active Substance: AMPHETAMINE ASPARTATE\AMPHETAMINE SULFATE\DEXTROAMPHETAMINE SACCHARATE\DEXTROAMPHETAMINE SULFATE

REACTIONS (8)
  - Hypersensitivity [None]
  - Gastrointestinal disorder [None]
  - Product formulation issue [None]
  - Skin disorder [None]
  - Drug ineffective [None]
  - Product substitution issue [None]
  - Somnolence [None]
  - Hair disorder [None]

NARRATIVE: CASE EVENT DATE: 20150720
